FAERS Safety Report 7805960-4 (Version None)
Quarter: 2011Q4

REPORT INFORMATION
  Report Type: 
  Country: None (occurrence: None)
  Receive Date: 20111011
  Receipt Date: 20111003
  Transmission Date: 20120403
  Serious: Yes (Hospitalization)
  Sender: FDA-Public Use
  Company Number: CA-ELI_LILLY_AND_COMPANY-CA201110000567

PATIENT
  Sex: Male

DRUGS (2)
  1. HUMULIN N [Suspect]
     Dosage: UNK, UNKNOWN
  2. HUMULIN N [Suspect]
     Dosage: UNK UNK, UNKNOWN

REACTIONS (2)
  - POOR PERIPHERAL CIRCULATION [None]
  - BLOOD GLUCOSE INCREASED [None]
